FAERS Safety Report 13419359 (Version 5)
Quarter: 2018Q1

REPORT INFORMATION
  Report Type: Report from Study
  Country: BR (occurrence: BR)
  Receive Date: 20170407
  Receipt Date: 20180202
  Transmission Date: 20180508
  Serious: Yes (Hospitalization, Other)
  Sender: FDA-Public Use
  Company Number: BR-ROCHE-1917592

PATIENT
  Age: 63 Year
  Sex: Female
  Weight: 52 kg

DRUGS (4)
  1. PANTOPRAZOLE [Concomitant]
     Active Substance: PANTOPRAZOLE
  2. ACTEMRA [Suspect]
     Active Substance: TOCILIZUMAB
     Indication: RHEUMATOID ARTHRITIS
     Route: 042
     Dates: start: 20151201
  3. DOMPERIDONE [Concomitant]
     Active Substance: DOMPERIDONE
  4. ARAVA [Concomitant]
     Active Substance: LEFLUNOMIDE
     Dosage: INDICATION WAS NOT INFORMED
     Route: 065

REACTIONS (38)
  - Pain [Unknown]
  - Micturition disorder [Recovering/Resolving]
  - Fatigue [Unknown]
  - Blood cholesterol increased [Unknown]
  - Neck pain [Unknown]
  - Musculoskeletal pain [Unknown]
  - Hand fracture [Unknown]
  - Muscular weakness [Unknown]
  - Dry eye [Unknown]
  - Lactose intolerance [Recovered/Resolved]
  - Cerebrovascular accident [Unknown]
  - Urinary tract infection [Recovered/Resolved]
  - Vomiting [Not Recovered/Not Resolved]
  - Productive cough [Not Recovered/Not Resolved]
  - Memory impairment [Unknown]
  - Blood cholesterol abnormal [Unknown]
  - Arthralgia [Unknown]
  - Fall [Unknown]
  - Mental disorder [Unknown]
  - Vulval neoplasm [Recovering/Resolving]
  - Body height decreased [Unknown]
  - Abdominal pain [Recovering/Resolving]
  - Ligament disorder [Unknown]
  - Cardiac disorder [Unknown]
  - Neck pain [Not Recovered/Not Resolved]
  - Headache [Unknown]
  - Joint swelling [Not Recovered/Not Resolved]
  - Lung disorder [Recovering/Resolving]
  - Cataract [Unknown]
  - Abdominal pain upper [Recovered/Resolved]
  - Lung disorder [Unknown]
  - Impaired self-care [Not Recovered/Not Resolved]
  - Peripheral swelling [Not Recovered/Not Resolved]
  - Gastritis [Recovered/Resolved]
  - Weight decreased [Unknown]
  - Facial pain [Unknown]
  - Skin disorder [Not Recovered/Not Resolved]
  - Labyrinthitis [Unknown]

NARRATIVE: CASE EVENT DATE: 201603
